FAERS Safety Report 7828571 (Version 2)
Quarter: 2012Q4

REPORT INFORMATION
  Report Type: 
  Country: US (occurrence: US)
  Receive Date: 20110225
  Receipt Date: 20121129
  Transmission Date: 20130627
  Serious: Yes (Other)
  Sender: FDA-Public Use
  Company Number: US-ROCHE-734430

PATIENT
  Age: 29 None
  Sex: Female
  Weight: 63.5 kg

DRUGS (4)
  1. ACCUTANE [Suspect]
     Indication: ACNE
     Route: 065
     Dates: start: 19870101, end: 19891231
  2. ACCUTANE [Suspect]
     Indication: ACNE CYSTIC
     Route: 065
  3. ACCUTANE [Suspect]
     Dosage: On 02/May/1996 received isotretinoin therapy
     Route: 065
  4. KENALOG [Concomitant]

REACTIONS (11)
  - Crohn^s disease [Unknown]
  - Inflammatory bowel disease [Unknown]
  - Intestinal haemorrhage [Unknown]
  - Intestinal obstruction [Unknown]
  - Abdominal pain [Unknown]
  - Nausea [Unknown]
  - Rectal haemorrhage [Unknown]
  - Irritable bowel syndrome [Unknown]
  - Arthralgia [Unknown]
  - Dry skin [Unknown]
  - Arthralgia [Unknown]
